FAERS Safety Report 16477290 (Version 1)
Quarter: 2019Q2

REPORT INFORMATION
  Report Type: Spontaneous
  Country: IT (occurrence: IT)
  Receive Date: 20190626
  Receipt Date: 20190626
  Transmission Date: 20190711
  Serious: Yes (Hospitalization)
  Sender: FDA-Public Use
  Company Number: IT-TEVA-2019-IT-1068490

PATIENT
  Age: 49 Year
  Sex: Female

DRUGS (3)
  1. CISPLATIN. [Suspect]
     Active Substance: CISPLATIN
     Indication: GASTRIC CANCER STAGE IV
     Route: 042
     Dates: start: 20190122, end: 20190305
  2. CAPECITABINE. [Suspect]
     Active Substance: CAPECITABINE
     Dates: start: 20190122, end: 20190305
  3. HERCEPTIN [Suspect]
     Active Substance: TRASTUZUMAB
     Indication: GASTRIC CANCER STAGE IV
     Route: 042
     Dates: start: 20190122, end: 20190305

REACTIONS (2)
  - Pulmonary embolism [Recovered/Resolved]
  - Embolism venous [Recovered/Resolved]

NARRATIVE: CASE EVENT DATE: 20190329
